FAERS Safety Report 4885468-9 (Version None)
Quarter: 2005Q4

REPORT INFORMATION
  Report Type: 
  Country: None (occurrence: None)
  Receive Date: 20051216
  Receipt Date: 20050214
  Transmission Date: 20060501
  Serious: Yes (Other)
  Sender: FDA-Public Use
  Company Number: PHEH2005US02113

PATIENT

DRUGS (1)
  1. SANDOSTATIN [Suspect]
     Indication: LIVER DISORDER

REACTIONS (4)
  - CHROMATURIA [None]
  - FAECES DISCOLOURED [None]
  - HAEMATEMESIS [None]
  - WEIGHT DECREASED [None]
